FAERS Safety Report 20797721 (Version 1)
Quarter: 2022Q2

REPORT INFORMATION
  Report Type: Report from Study
  Country: UA (occurrence: UA)
  Receive Date: 20220506
  Receipt Date: 20220506
  Transmission Date: 20220720
  Serious: Yes (Hospitalization, Other)
  Sender: FDA-Public Use
  Company Number: UA-CELGENE-UKR-20210301584

PATIENT
  Age: 25 Year
  Sex: Male
  Weight: 71 kg

DRUGS (17)
  1. Salofalk [Concomitant]
     Indication: Crohn^s disease
     Dosage: 1500 MILLIGRAM
     Route: 048
     Dates: start: 20200325, end: 20210224
  2. Salofalk [Concomitant]
     Dosage: 3000 MILLIGRAM
     Route: 048
     Dates: start: 20210225, end: 20210303
  3. Salofalk [Concomitant]
     Dosage: 1 GRAM
     Route: 048
     Dates: start: 20210304
  4. PREDNISOLONE [Concomitant]
     Active Substance: PREDNISOLONE
     Indication: Crohn^s disease
     Dosage: 15 MILLIGRAM
     Route: 048
     Dates: start: 20200622, end: 20210226
  5. PREDNISOLONE [Concomitant]
     Active Substance: PREDNISOLONE
     Dosage: 40 MILLIGRAM
     Route: 048
     Dates: start: 20210227, end: 20210303
  6. PREDNISOLONE [Concomitant]
     Active Substance: PREDNISOLONE
     Dosage: 60 MILLIGRAM
     Route: 042
     Dates: start: 20210304, end: 20210304
  7. PREDNISOLONE [Concomitant]
     Active Substance: PREDNISOLONE
     Dosage: 90 MILLIGRAM
     Route: 042
     Dates: start: 20210305, end: 20210310
  8. CLINDAMYCIN [Concomitant]
     Active Substance: CLINDAMYCIN
     Indication: Crohn^s disease
     Dosage: 1200 MILLIGRAM
     Route: 042
     Dates: start: 20210304, end: 20210310
  9. ORNIZOLE [Concomitant]
     Indication: Crohn^s disease
     Dosage: 200 MILLILITER
     Route: 042
     Dates: start: 20210304, end: 20210310
  10. BRAXON [Concomitant]
     Indication: Crohn^s disease
     Dosage: 160 MILLIGRAM
     Route: 030
     Dates: start: 20200225, end: 20210301
  11. METRONIDAZOLE [Concomitant]
     Active Substance: METRONIDAZOLE
     Indication: Crohn^s disease
     Dosage: 1500 MILLIGRAM
     Route: 048
     Dates: start: 20200225, end: 20210303
  12. PANTOPRAZOLE SODIUM [Concomitant]
     Active Substance: PANTOPRAZOLE SODIUM
     Indication: Prophylaxis
     Dosage: 40 MILLIGRAM
     Route: 048
     Dates: start: 20200717, end: 20210303
  13. MAGNESIUM ASPARTATE\POTASSIUM ASPARTATE [Concomitant]
     Active Substance: MAGNESIUM ASPARTATE\POTASSIUM ASPARTATE
     Indication: Prophylaxis
     Dosage: DAILY DOSE : 2 TABLET?TOTAL DOSE : 458 TABLET?UNIT DOSE : 1 TABLET?2 TABLET
     Route: 048
     Dates: start: 20200717, end: 20210303
  14. MEVERIN [Concomitant]
     Indication: Crohn^s disease
     Dosage: 400 MILLIGRAM
     Route: 048
     Dates: start: 20200225, end: 20210303
  15. Probiz [Concomitant]
     Indication: Crohn^s disease
     Dosage: DAILY DOSE : 2 CAPSULE?TOTAL DOSE : 744 CAPSULE?UNIT DOSE : 1 CAPSULE?2 CAPSULE
     Route: 048
     Dates: start: 20200225, end: 20210303
  16. NEURORUBINE [Concomitant]
     Indication: Nutritional supplementation
     Dosage: 3 MILLILITER
     Route: 042
     Dates: start: 20210305, end: 20210310
  17. PANCREATIN [Concomitant]
     Active Substance: PANCRELIPASE
     Indication: Product used for unknown indication
     Dosage: DAILY DOSE : 3 TABLET?TOTAL DOSE : 18 TABLET?UNIT DOSE : 1 TABLET?3 TABLET
     Route: 048
     Dates: start: 20210304, end: 20210310

REACTIONS (2)
  - Crohn^s disease [Recovered/Resolved]
  - Anal fistula infection [Recovered/Resolved with Sequelae]

NARRATIVE: CASE EVENT DATE: 20210304
